FAERS Safety Report 17209783 (Version 1)
Quarter: 2019Q4

REPORT INFORMATION
  Report Type: Spontaneous
  Country: US (occurrence: US)
  Receive Date: 20191227
  Receipt Date: 20191227
  Transmission Date: 20200122
  Serious: No
  Sender: FDA-Public Use
  Company Number: US-SA-2019SA355306

PATIENT
  Age: 53 Year
  Sex: Female
  Weight: 60.8 kg

DRUGS (4)
  1. RIFADIN [Suspect]
     Active Substance: RIFAMPIN
     Indication: LATENT TUBERCULOSIS
     Dosage: UNK
     Dates: start: 2019, end: 2019
  2. REMODULIN [Suspect]
     Active Substance: TREPROSTINIL
     Indication: PULMONARY ARTERIAL HYPERTENSION
     Dosage: 0.120 UG/KG
     Route: 041
     Dates: start: 20190501
  3. OPSUMIT [Concomitant]
     Active Substance: MACITENTAN
  4. ADEMPAS [Concomitant]
     Active Substance: RIOCIGUAT

REACTIONS (4)
  - Nausea [Unknown]
  - Vomiting [Unknown]
  - Latent tuberculosis [Unknown]
  - Headache [Unknown]

NARRATIVE: CASE EVENT DATE: 2019
